FAERS Safety Report 9520111 (Version 1)
Quarter: 2013Q1

REPORT INFORMATION
  Report Type: Spontaneous
  Country: US (occurrence: None)
  Receive Date: 20130305
  Receipt Date: 20130305
  Transmission Date: 20140127
  Serious: Yes (Other)
  Sender: FDA-Public Use
  Company Number: 163-21880-12072450

PATIENT
  Age: 70 Year
  Sex: Female
  Weight: 53.52 kg

DRUGS (26)
  1. REVLIMID (LENALIDOMIDE) (CAPSULES) [Suspect]
     Indication: PLASMA CELL MYELOMA
     Route: 048
     Dates: start: 200809, end: 201001
  2. VELCADE (INJECTION) [Concomitant]
  3. MELPHALAN [Concomitant]
  4. DARBEPOIETIN ALFA (DARBEPOIETIN ALFA) [Concomitant]
  5. DEXAMETHASONE (DEXAMETHASONE) [Concomitant]
  6. DECADRON (DEXAMETHASONE) [Concomitant]
  7. ZOMETA (ZOLEDRONIC ACID) [Concomitant]
  8. ASPIRIN (TABLETS) [Concomitant]
  9. CALCIUM CARBONATE (CALCIUM CARBONATE) (CHEWABLE TABLET) [Concomitant]
  10. KLOR-CON (POTASSIUM CHLORIDE) (TABLETS) [Concomitant]
  11. LORAZEPAM (LORAZEPAM) (TABLETS) [Concomitant]
  12. MAGNESIUM GLUCONATE (MAGNESIUM GLUCONATE) (TABLETS) [Concomitant]
  13. MAGNESIUM (MAGNESIUM) (TABLETS) [Concomitant]
  14. METFORMIN HCL (METFORMIN HYDROCHLORIDE) (TABLETS) [Concomitant]
  15. MICARDIS (TELMISARTAN) (TABLETS) [Concomitant]
  16. CATAPLEX [Concomitant]
  17. SYMPLEX (LORAZEPAM) (CAPSULES) [Concomitant]
  18. MULTIVITAMINS (MULTIVITAMINS) (TABLETS) [Concomitant]
  19. NAPROXEN SODIUM (NAPROXEN SODIUM) (TABLETS) [Concomitant]
  20. ONDANSETRON (ONDANSETRON) (TABLETS) [Concomitant]
  21. PROBIOTICS (PROBIOTICS) (CAPSULES) [Concomitant]
  22. TRAMADOL HCL (TRAMADOL HYDROCHLORIDE) (TABLETS) [Concomitant]
  23. UNITHROID (LEVOTHYROXINE SODIUM) (TABLETS) [Concomitant]
  24. VITAMIN B-12 (CYANOCOBALAMIN) (TABLETS) [Concomitant]
  25. VITAMIN D2 (ERGOCALCIFEROL) (CAPSULES) [Concomitant]
  26. ZYRTEC (CETIRIZINE HYDROCHLORIDE) (TABLETS) [Concomitant]

REACTIONS (3)
  - Pancytopenia [None]
  - Inappropriate schedule of drug administration [None]
  - No adverse event [None]
